FAERS Safety Report 6433060-7 (Version None)
Quarter: 2009Q4

REPORT INFORMATION
  Report Type: 
  Country: None (occurrence: None)
  Receive Date: 20091105
  Receipt Date: 20091022
  Transmission Date: 20100525
  Serious: Yes (Hospitalization)
  Sender: FDA-Public Use
  Company Number: 001255

PATIENT
  Sex: Male

DRUGS (17)
  1. LACOSAMIDE [Suspect]
     Indication: EPILEPSY
     Dosage: 400 MG, BID, ORAL
     Route: 048
     Dates: start: 20030331
  2. PHENYTOIN [Concomitant]
  3. TOPIRAMATE [Concomitant]
  4. ACETAMINOPHEN [Concomitant]
  5. BISACODYL [Concomitant]
  6. LEVOCARNITINE [Concomitant]
  7. CALCITRIOL [Concomitant]
  8. TERAZOSIN HCL [Concomitant]
  9. POTASSIUM CHLORIDE [Concomitant]
  10. ALBUTEROL [Concomitant]
  11. IPRATROPIUM [Concomitant]
  12. DOXYCYCLINE [Concomitant]
  13. FUROSEMIDE [Concomitant]
  14. SPIRONOLACTONE [Concomitant]
  15. OMEPRAZOLE [Concomitant]
  16. NIZORAL [Concomitant]
  17. LORAZEPAM [Concomitant]

REACTIONS (5)
  - ALVEOLITIS FIBROSING [None]
  - ASPIRATION [None]
  - OEDEMA PERIPHERAL [None]
  - PULMONARY FIBROSIS [None]
  - STATUS ASTHMATICUS [None]
